FAERS Safety Report 6832928-7 (Version None)
Quarter: 2010Q3

REPORT INFORMATION
  Report Type: 
  Country: None (occurrence: None)
  Receive Date: 20100712
  Receipt Date: 20070319
  Transmission Date: 20110219
  Serious: No
  Sender: FDA-Public Use
  Company Number: US-PFIZER INC-2007022248

PATIENT
  Sex: Female
  Weight: 58.97 kg

DRUGS (9)
  1. CHANTIX [Suspect]
     Indication: SMOKING CESSATION THERAPY
     Dates: start: 20070305
  2. ALTACE [Concomitant]
  3. AMARYL [Concomitant]
  4. METFORMIN HCL [Concomitant]
  5. METOPROLOL [Concomitant]
  6. FENOFIBRATE [Concomitant]
  7. LIPITOR [Concomitant]
  8. FISH OIL [Concomitant]
  9. HYDROCHLOROTHIAZIDE [Concomitant]

REACTIONS (2)
  - DIZZINESS [None]
  - NAUSEA [None]
